FAERS Safety Report 25770328 (Version 2)
Quarter: 2025Q4

REPORT INFORMATION
  Report Type: Spontaneous
  Country: JP (occurrence: JP)
  Receive Date: 20250908
  Receipt Date: 20251210
  Transmission Date: 20260118
  Serious: Yes (Other)
  Sender: ABBVIE
  Company Number: JP-TAKEDA-2025TJP008972

PATIENT
  Age: 44 Year
  Sex: Female

DRUGS (3)
  1. LEUPROLIDE ACETATE [Suspect]
     Active Substance: LEUPROLIDE ACETATE
     Indication: Hormone therapy
     Dosage: 3.75 MILLIGRAM, MONTHLY
     Route: 065
     Dates: start: 20240909, end: 20241007
  2. LEUPROLIDE ACETATE [Suspect]
     Active Substance: LEUPROLIDE ACETATE
     Indication: Breast cancer stage I
  3. TAMOXIFEN [Concomitant]
     Active Substance: TAMOXIFEN
     Indication: Product used for unknown indication
     Route: 065

REACTIONS (3)
  - Arthralgia [Recovering/Resolving]
  - Bone pain [Recovering/Resolving]
  - Pubic pain [Recovering/Resolving]

NARRATIVE: CASE EVENT DATE: 20251109
